FAERS Safety Report 21258982 (Version 4)
Quarter: 2022Q4

REPORT INFORMATION
  Report Type: Report from Study
  Country: US (occurrence: US)
  Receive Date: 20220826
  Receipt Date: 20221213
  Transmission Date: 20230113
  Serious: No
  Sender: FDA-Public Use
  Company Number: US-NOVARTISTESTPH-NVSC2022US187514

PATIENT
  Sex: Female

DRUGS (1)
  1. KESIMPTA [Suspect]
     Active Substance: OFATUMUMAB
     Indication: Relapsing-remitting multiple sclerosis
     Dosage: 20 MG, QMO
     Route: 058
     Dates: start: 20211019

REACTIONS (9)
  - Muscular weakness [Not Recovered/Not Resolved]
  - Balance disorder [Unknown]
  - Typical aura without headache [Unknown]
  - Photophobia [Unknown]
  - Vision blurred [Unknown]
  - Fatigue [Not Recovered/Not Resolved]
  - Nerve injury [Unknown]
  - Skin lesion [Unknown]
  - Limb discomfort [Unknown]
